FAERS Safety Report 9390443 (Version 1)
Quarter: 2013Q3

REPORT INFORMATION
  Report Type: Report from Study
  Country: CO (occurrence: CO)
  Receive Date: 20130709
  Receipt Date: 20130709
  Transmission Date: 20140515
  Serious: Yes (Death)
  Sender: FDA-Public Use
  Company Number: CO-ROCHE-1245804

PATIENT
  Sex: Female

DRUGS (1)
  1. PEG-INTERFERON ALFA 2A [Suspect]
     Indication: HEPATITIS C
     Route: 058
     Dates: start: 20121119

REACTIONS (2)
  - Catheter site infection [Fatal]
  - Cardiac arrest [Fatal]
